FAERS Safety Report 13592836 (Version 1)
Quarter: 2017Q2

REPORT INFORMATION
  Report Type: Report from Study
  Country: BR (occurrence: BR)
  Receive Date: 20170530
  Receipt Date: 20170530
  Transmission Date: 20170830
  Serious: Yes (Other)
  Sender: FDA-Public Use
  Company Number: PHHY2017BR077828

PATIENT
  Sex: Female

DRUGS (1)
  1. ACLASTA [Suspect]
     Active Substance: ZOLEDRONIC ACID
     Indication: OSTEOPOROSIS
     Route: 065

REACTIONS (6)
  - Loss of consciousness [Unknown]
  - Systemic lupus erythematosus [Unknown]
  - Constipation [Unknown]
  - Abdominal pain [Unknown]
  - Pain [Unknown]
  - Gait disturbance [Unknown]
